FAERS Safety Report 9236560 (Version 5)
Quarter: 2014Q3

REPORT INFORMATION
  Report Type: Spontaneous
  Country: US (occurrence: US)
  Receive Date: 20130417
  Receipt Date: 20140824
  Transmission Date: 20150326
  Serious: Yes (Hospitalization, Disabling, Other)
  Sender: FDA-Public Use
  Company Number: US-009507513-2012SP014894

PATIENT
  Sex: Female
  Weight: 72.56 kg

DRUGS (1)
  1. NUVARING [Suspect]
     Active Substance: ETHINYL ESTRADIOL\ETONOGESTREL
     Indication: CONTRACEPTION
     Dates: start: 2005, end: 201003

REACTIONS (15)
  - Mitral valve incompetence [Unknown]
  - Pulmonary embolism [Unknown]
  - Menorrhagia [Unknown]
  - Umbilical hernia repair [Unknown]
  - Atelectasis [Unknown]
  - Protein C decreased [Unknown]
  - Ventricular hypokinesia [Unknown]
  - Tricuspid valve incompetence [Unknown]
  - Uterine cervical erosion [Unknown]
  - Protein S decreased [Unknown]
  - Dilatation ventricular [Unknown]
  - Pain in extremity [Unknown]
  - Cervical dysplasia [Unknown]
  - Maternal exposure before pregnancy [Recovered/Resolved]
  - Musculoskeletal chest pain [Unknown]

NARRATIVE: CASE EVENT DATE: 20050206
